FAERS Safety Report 15355432 (Version 1)
Quarter: 2018Q3

REPORT INFORMATION
  Report Type: Report from Study
  Country: US (occurrence: US)
  Receive Date: 20180906
  Receipt Date: 20180906
  Transmission Date: 20181010
  Serious: No
  Sender: FDA-Public Use
  Company Number: PHHY2018US092259

PATIENT
  Sex: Male

DRUGS (1)
  1. ILARIS [Suspect]
     Active Substance: CANAKINUMAB
     Indication: FAMILIAL MEDITERRANEAN FEVER
     Dosage: 67 MG, Q4W
     Route: 058
     Dates: start: 20180614

REACTIONS (5)
  - Hyperventilation [Unknown]
  - Nasal congestion [Unknown]
  - Panic attack [Unknown]
  - Anxiety [Unknown]
  - Rhinorrhoea [Unknown]
